FAERS Safety Report 7396869-1 (Version None)
Quarter: 2011Q1

REPORT INFORMATION
  Report Type: 
  Country: None (occurrence: None)
  Receive Date: 20110328
  Receipt Date: 20110318
  Transmission Date: 20110831
  Serious: Yes (Other)
  Sender: FDA-Public Use
  Company Number: 2011SP007961

PATIENT
  Age: 71 Year
  Sex: Male
  Weight: 99.7913 kg

DRUGS (7)
  1. LORTAB [Concomitant]
  2. ZOCOR [Concomitant]
  3. METFORMIN [Concomitant]
  4. MIRALAX [Suspect]
     Indication: CONSTIPATION
     Dosage: 17 GM; ONCE; PO
     Route: 048
     Dates: start: 20110215, end: 20110215
  5. LOSARTAN [Suspect]
     Indication: PRODUCT USED FOR UNKNOWN INDICATION
  6. ALLI [Concomitant]
  7. CENTRUM /00554501/ [Concomitant]

REACTIONS (1)
  - DRUG HYPERSENSITIVITY [None]
